FAERS Safety Report 15952429 (Version 1)
Quarter: 2019Q1

REPORT INFORMATION
  Report Type: Spontaneous
  Country: CH (occurrence: CH)
  Receive Date: 20190211
  Receipt Date: 20190211
  Transmission Date: 20190417
  Serious: Yes (Other)
  Sender: FDA-Public Use
  Company Number: CH-AMREGENT-20181223

PATIENT
  Age: 28 Year
  Sex: Female
  Weight: 62 kg

DRUGS (4)
  1. ANDREAMAG [Concomitant]
     Dosage: UNKNOWN
     Route: 065
  2. FERINJECT [Suspect]
     Active Substance: FERRIC CARBOXYMALTOSE
     Dosage: (1000 MG)
     Route: 041
     Dates: start: 20180627, end: 20180627
  3. GYNEFAM PLUS [Concomitant]
     Dosage: UNKNOWN
     Route: 065
  4. MUCILAR [Concomitant]
     Dosage: UNKNOWN
     Route: 065

REACTIONS (2)
  - Maternal exposure during pregnancy [Recovered/Resolved]
  - Anaphylactoid reaction [Unknown]

NARRATIVE: CASE EVENT DATE: 20180627
